FAERS Safety Report 8642790 (Version 4)
Quarter: 2013Q3

REPORT INFORMATION
  Report Type: Spontaneous
  Country: PT (occurrence: PT)
  Receive Date: 20120629
  Receipt Date: 20130909
  Transmission Date: 20140515
  Serious: Yes (Death, Hospitalization, Other)
  Sender: FDA-Public Use
  Company Number: PT-AMGEN-PRTSP2012038166

PATIENT
  Age: 74 Year
  Sex: Male
  Weight: 60 kg

DRUGS (2)
  1. NPLATE [Suspect]
     Indication: THROMBOCYTOPENIC PURPURA
     Dosage: 600 MUG, QWK
     Route: 058
     Dates: start: 20111216
  2. RITUXIMAB [Concomitant]
     Dosage: UNK

REACTIONS (9)
  - Anaemia [Fatal]
  - Therapeutic response decreased [Not Recovered/Not Resolved]
  - Thrombocytopenia [Not Recovered/Not Resolved]
  - Myelodysplastic syndrome [Unknown]
  - Platelet count increased [Unknown]
  - Epistaxis [Unknown]
  - Gingival bleeding [Unknown]
  - Ecchymosis [Unknown]
  - Petechiae [Unknown]
